FAERS Safety Report 26092616 (Version 1)
Quarter: 2025Q4

REPORT INFORMATION
  Report Type: Spontaneous
  Country: CN (occurrence: CN)
  Receive Date: 20251126
  Receipt Date: 20251126
  Transmission Date: 20260117
  Serious: Yes (Hospitalization, Other)
  Sender: ALKEM
  Company Number: None

PATIENT
  Sex: Male

DRUGS (13)
  1. TACROLIMUS [Suspect]
     Active Substance: TACROLIMUS
     Indication: Immunosuppressant drug therapy
     Dosage: UNK
     Route: 065
  2. TACROLIMUS [Suspect]
     Active Substance: TACROLIMUS
     Dosage: UNK (RECHALLENGE DOSE)
     Route: 065
  3. MYCOPHENOLATE MOFETIL [Suspect]
     Active Substance: MYCOPHENOLATE MOFETIL
     Indication: Immunosuppressant drug therapy
     Dosage: UNK
     Route: 065
  4. METHYLPREDNISOLONE [Suspect]
     Active Substance: METHYLPREDNISOLONE
     Indication: Immunosuppressant drug therapy
     Dosage: 12 MILLIGRAM, QD (PER DAY)
     Route: 065
  5. METHYLPREDNISOLONE [Suspect]
     Active Substance: METHYLPREDNISOLONE
     Dosage: 8 MILLIGRAM, QD (TAPPERED DOSE,PER DAY)
     Route: 065
  6. CYCLOSPORINE [Suspect]
     Active Substance: CYCLOSPORINE
     Indication: Immunosuppressant drug therapy
     Dosage: UNK
     Route: 065
  7. MIZORIBINE [Suspect]
     Active Substance: MIZORIBINE
     Indication: Immunosuppressant drug therapy
     Dosage: 100 MG/DAY, BID
     Route: 065
  8. CEFOPERAZONE\SULBACTAM [Concomitant]
     Active Substance: CEFOPERAZONE\SULBACTAM
     Indication: Dyspnoea
     Dosage: UNK
     Route: 065
  9. CEFOPERAZONE\SULBACTAM [Concomitant]
     Active Substance: CEFOPERAZONE\SULBACTAM
     Indication: Fatigue
  10. CEFOPERAZONE\SULBACTAM [Concomitant]
     Active Substance: CEFOPERAZONE\SULBACTAM
     Indication: Pyrexia
  11. MEROPENEM [Concomitant]
     Active Substance: MEROPENEM
     Indication: Dyspnoea
     Dosage: UNK
     Route: 065
  12. MEROPENEM [Concomitant]
     Active Substance: MEROPENEM
     Indication: Fatigue
  13. MEROPENEM [Concomitant]
     Active Substance: MEROPENEM
     Indication: Pyrexia

REACTIONS (8)
  - Aspergillus infection [Unknown]
  - Pneumocystis jirovecii infection [Unknown]
  - Pneumonia klebsiella [Unknown]
  - Retroperitoneal abscess [Recovered/Resolved]
  - Liver abscess [Recovered/Resolved]
  - Cytomegalovirus infection [Unknown]
  - Klebsiella infection [Unknown]
  - Hyperkalaemia [Unknown]
